FAERS Safety Report 13859620 (Version 2)
Quarter: 2017Q3

REPORT INFORMATION
  Report Type: Report from Study
  Country: US (occurrence: US)
  Receive Date: 20170811
  Receipt Date: 20170830
  Transmission Date: 20171127
  Serious: Yes (Hospitalization, Other)
  Sender: FDA-Public Use
  Company Number: US-BAYER-2017-130121

PATIENT
  Age: 52 Year
  Sex: Male

DRUGS (2)
  1. BLEONOXAN [Concomitant]
  2. STIVARGA [Suspect]
     Active Substance: REGORAFENIB
     Indication: COLORECTAL CANCER METASTATIC
     Dosage: 160 MG, DAILY / 3 WEEKS ON, 1 WEEK OFF
     Route: 048
     Dates: start: 20170630, end: 20170819

REACTIONS (18)
  - Pyrexia [None]
  - Dysphonia [Not Recovered/Not Resolved]
  - Fatigue [Not Recovered/Not Resolved]
  - Decreased appetite [None]
  - Colorectal cancer metastatic [None]
  - Tremor [None]
  - Pain in extremity [None]
  - Injection site pain [None]
  - Gait disturbance [None]
  - Back pain [None]
  - Pain in extremity [None]
  - Dysphagia [None]
  - Asthenia [None]
  - Red blood cell count decreased [None]
  - White blood cell count decreased [None]
  - Platelet count decreased [None]
  - Urinary incontinence [None]
  - Burning sensation [Not Recovered/Not Resolved]

NARRATIVE: CASE EVENT DATE: 2017
